FAERS Safety Report 4536866-4 (Version None)
Quarter: 2004Q4

REPORT INFORMATION
  Report Type: 
  Country: None (occurrence: None)
  Receive Date: 20041223
  Receipt Date: 20041018
  Transmission Date: 20050328
  Serious: Yes (Hospitalization)
  Sender: FDA-Public Use
  Company Number: F04200400216

PATIENT
  Age: 76 Year
  Sex: Female

DRUGS (5)
  1. FONDAPARINUX SODIUM [Suspect]
     Indication: THROMBOSIS PROPHYLAXIS
     Dosage: 2.5MG PER DAY
     Route: 058
     Dates: start: 20040601, end: 20040607
  2. ISCOVER [Concomitant]
     Dosage: 75MG PER DAY
     Route: 048
  3. CAPTOHEXAL [Concomitant]
     Indication: HYPERTENSION
     Dosage: 25MG TWICE PER DAY
     Route: 048
  4. HAMATOPAN [Concomitant]
     Dosage: 100MG PER DAY
     Route: 048
  5. ESIDRIX [Concomitant]
     Indication: HYPERTENSION
     Dosage: 12.5MG PER DAY
     Route: 048

REACTIONS (3)
  - DISSEMINATED INTRAVASCULAR COAGULATION [None]
  - ILEUS [None]
  - POST PROCEDURAL HAEMORRHAGE [None]
